FAERS Safety Report 9784687 (Version 2)
Quarter: 2016Q3

REPORT INFORMATION
  Report Type: Report from Study
  Country: GB (occurrence: GB)
  Receive Date: 20131226
  Receipt Date: 20160829
  Transmission Date: 20161109
  Serious: Yes (Other)
  Sender: FDA-Public Use
  Company Number: GB-ROCHE-1326107

PATIENT
  Age: 56 Year
  Sex: Male

DRUGS (20)
  1. ZOPICLONE [Concomitant]
     Active Substance: ZOPICLONE
  2. SENNA [Concomitant]
     Active Substance: SENNA LEAF\SENNOSIDES\SENNOSIDES A AND B
  3. GEMCITABINE HYDROCHLORIDE. [Suspect]
     Active Substance: GEMCITABINE HYDROCHLORIDE
     Indication: PANCREATIC CARCINOMA
     Dosage: ON DAYS 1, 8, AND 15
     Route: 042
  4. DIAMORPHINE [Concomitant]
     Active Substance: DIACETYLMORPHINE
  5. CREON [Concomitant]
     Active Substance: PANCRELIPASE AMYLASE\PANCRELIPASE LIPASE\PANCRELIPASE PROTEASE
  6. MORPHINE [Concomitant]
     Active Substance: MORPHINE
  7. PARACETAMOL [Concomitant]
     Active Substance: ACETAMINOPHEN
  8. FLUOXETINE [Concomitant]
     Active Substance: FLUOXETINE HYDROCHLORIDE
  9. NOZINAN [Concomitant]
     Active Substance: LEVOMEPROMAZINE
  10. METOCLOPRAMIDE. [Concomitant]
     Active Substance: METOCLOPRAMIDE
  11. CAPECITABINE. [Suspect]
     Active Substance: CAPECITABINE
     Indication: PANCREATIC CARCINOMA
     Dosage: ON DAYS 1-21
     Route: 048
  12. OMEPRAZOLE. [Concomitant]
     Active Substance: OMEPRAZOLE
  13. ONDANSETRON [Concomitant]
     Active Substance: ONDANSETRON
  14. BENDROFLUAZIDE [Concomitant]
     Active Substance: BENDROFLUMETHIAZIDE
  15. SARGRAMOSTIM [Suspect]
     Active Substance: SARGRAMOSTIM
     Indication: PANCREATIC CARCINOMA
     Route: 023
  16. DICLOFENAC [Concomitant]
     Active Substance: DICLOFENAC
  17. HEPARIN [Concomitant]
     Active Substance: HEPARIN SODIUM
  18. BRUFEN [Concomitant]
     Active Substance: IBUPROFEN
  19. HALOPERIDOL. [Concomitant]
     Active Substance: HALOPERIDOL
  20. LISINOPRIL. [Concomitant]
     Active Substance: LISINOPRIL

REACTIONS (3)
  - Parkinsonism [Recovered/Resolved]
  - Panniculitis [Recovered/Resolved with Sequelae]
  - Confusional state [Recovered/Resolved]

NARRATIVE: CASE EVENT DATE: 20080615
